FAERS Safety Report 19498719 (Version 1)
Quarter: 2021Q3

REPORT INFORMATION
  Report Type: Spontaneous
  Country: US (occurrence: US)
  Receive Date: 20210706
  Receipt Date: 20210706
  Transmission Date: 20211014
  Serious: No
  Sender: FDA-Public Use
  Company Number: US-BAYER-2021-168299

PATIENT
  Sex: Male

DRUGS (1)
  1. MIRENA [Suspect]
     Active Substance: LEVONORGESTREL
     Dosage: UNK

REACTIONS (1)
  - Penile pain [None]

NARRATIVE: CASE EVENT DATE: 2021
